FAERS Safety Report 9076898 (Version 1)
Quarter: 2013Q1

REPORT INFORMATION
  Report Type: Spontaneous
  Country: TR (occurrence: TR)
  Receive Date: 20130130
  Receipt Date: 20130130
  Transmission Date: 20140127
  Serious: Yes (Hospitalization)
  Sender: FDA-Public Use
  Company Number: TR-ROXANE LABORATORIES, INC.-2013-RO-00140RO

PATIENT
  Age: 70 Year
  Sex: Female

DRUGS (2)
  1. LEVETIRACETAM [Suspect]
     Indication: PROPHYLAXIS
     Dosage: 1000 MG
  2. ACETYLSALICYLATE [Suspect]
     Dosage: 300 MG

REACTIONS (1)
  - Pemphigoid [Recovered/Resolved]
